FAERS Safety Report 18582164 (Version 1)
Quarter: 2020Q4

REPORT INFORMATION
  Report Type: Spontaneous
  Country: US (occurrence: US)
  Receive Date: 20201202
  Receipt Date: 20201202
  Transmission Date: 20210114
  Serious: Yes (Hospitalization)
  Sender: FDA-Public Use
  Company Number: None

PATIENT
  Age: 89 Year
  Sex: Male

DRUGS (1)
  1. FUROSEMIDE (FUROSEMIDE 40MG TAB) [Suspect]
     Active Substance: FUROSEMIDE
     Indication: CARDIAC FAILURE CONGESTIVE
     Route: 048
     Dates: start: 20200805, end: 20201013

REACTIONS (7)
  - Hyponatraemia [None]
  - Cardiac failure [None]
  - Venous pressure jugular abnormal [None]
  - Dizziness postural [None]
  - Hypovolaemia [None]
  - Condition aggravated [None]
  - Oedema peripheral [None]

NARRATIVE: CASE EVENT DATE: 20201010
